FAERS Safety Report 19194489 (Version 1)
Quarter: 2021Q2

REPORT INFORMATION
  Report Type: Spontaneous
  Country: US (occurrence: US)
  Receive Date: 20210429
  Receipt Date: 20210429
  Transmission Date: 20210717
  Serious: Yes (Hospitalization)
  Sender: FDA-Public Use
  Company Number: US-MYLANLABS-2021M1024986

PATIENT
  Age: 69 Year
  Sex: Female

DRUGS (1)
  1. DEXAMETHASONE. [Suspect]
     Active Substance: DEXAMETHASONE
     Indication: OESOPHAGEAL CANCER METASTATIC
     Dosage: 4 MILLIGRAM, TID, THREE TIMES A DAY
     Route: 065

REACTIONS (3)
  - Mucosal haemorrhage [Recovering/Resolving]
  - Immune thrombocytopenia [Recovering/Resolving]
  - Paradoxical drug reaction [Recovering/Resolving]
